FAERS Safety Report 13913515 (Version 1)
Quarter: 2017Q3

REPORT INFORMATION
  Report Type: Spontaneous
  Country: US (occurrence: None)
  Receive Date: 20170826
  Receipt Date: 20170826
  Transmission Date: 20171127
  Serious: Yes (Other)
  Sender: FDA-Public Use
  Company Number: None

PATIENT
  Age: 63 Year
  Sex: Female

DRUGS (10)
  1. LETAIRIS [Suspect]
     Active Substance: AMBRISENTAN
     Indication: PULMONARY ARTERIAL HYPERTENSION
     Route: 048
     Dates: start: 201012
  2. ALLOPURINOL. [Concomitant]
     Active Substance: ALLOPURINOL
  3. LANTUS [Concomitant]
     Active Substance: INSULIN GLARGINE
  4. HYOSCYAMINE. [Concomitant]
     Active Substance: HYOSCYAMINE
  5. SEVELAMER [Concomitant]
     Active Substance: SEVELAMER
  6. INSULIN LISPRO [Concomitant]
     Active Substance: INSULIN LISPRO
  7. ONDANSETRON [Concomitant]
     Active Substance: ONDANSETRON
  8. THERATUSSIN [Concomitant]
  9. LOVASTATIN. [Concomitant]
     Active Substance: LOVASTATIN
  10. BRIMONIDINE [Concomitant]
     Active Substance: BRIMONIDINE TARTRATE

REACTIONS (3)
  - Nasal congestion [None]
  - Memory impairment [None]
  - Drug dose omission [None]

NARRATIVE: CASE EVENT DATE: 20170825
